FAERS Safety Report 8269106-3 (Version None)
Quarter: 2012Q2

REPORT INFORMATION
  Report Type: 
  Country: None (occurrence: None)
  Receive Date: 20120409
  Receipt Date: 20120327
  Transmission Date: 20120825
  Serious: No
  Sender: FDA-Public Use
  Company Number: US-BAYER-2011-041544

PATIENT
  Age: 43 Year
  Sex: Female

DRUGS (1)
  1. MIRENA [Suspect]
     Dosage: 20 MCG/24HR, CONT
     Route: 015
     Dates: start: 20110330, end: 20110513

REACTIONS (5)
  - NAUSEA [None]
  - BACK PAIN [None]
  - DYSPAREUNIA [None]
  - VOMITING [None]
  - ABDOMINAL PAIN [None]
